FAERS Safety Report 5874644-4 (Version None)
Quarter: 2008Q3

REPORT INFORMATION
  Report Type: 
  Country: None (occurrence: None)
  Receive Date: 20080908
  Receipt Date: 20080908
  Transmission Date: 20090109
  Serious: Yes (Hospitalization, Disabling, Other)
  Sender: FDA-Public Use
  Company Number: None

PATIENT
  Age: 18 Month
  Sex: Female
  Weight: 11.3399 kg

DRUGS (1)
  1. TYLENOL (CAPLET) [Suspect]
     Indication: PROCEDURAL PAIN
     Dosage: 4X RECTAL
     Route: 054
     Dates: start: 20011003, end: 20011004

REACTIONS (3)
  - CEREBROVASCULAR ACCIDENT [None]
  - MEDICATION ERROR [None]
  - OVERDOSE [None]
